FAERS Safety Report 12408130 (Version 3)
Quarter: 2020Q3

REPORT INFORMATION
  Report Type: Spontaneous
  Country: JP (occurrence: JP)
  Receive Date: 20160526
  Receipt Date: 20200825
  Transmission Date: 20201102
  Serious: Yes (Other)
  Sender: FDA-Public Use
  Company Number: JP-PFIZER INC-2016273382

PATIENT
  Age: 62 Year
  Sex: Female

DRUGS (1)
  1. AMIODARONE HCL [Suspect]
     Active Substance: AMIODARONE HYDROCHLORIDE
     Dosage: UNK
     Route: 048

REACTIONS (9)
  - Basedow^s disease [Recovering/Resolving]
  - Goitre [Recovering/Resolving]
  - Eyelid disorder [Unknown]
  - Swelling of eyelid [Recovered/Resolved]
  - Tri-iodothyronine free increased [Recovered/Resolved]
  - Thyroxine free increased [Recovered/Resolved]
  - Hyperthyroidism [Recovering/Resolving]
  - Blood thyroid stimulating hormone decreased [Recovering/Resolving]
  - Anti-thyroid antibody positive [Recovering/Resolving]
